FAERS Safety Report 8902167 (Version 3)
Quarter: 2013Q1

REPORT INFORMATION
  Report Type: Spontaneous
  Country: US (occurrence: US)
  Receive Date: 20121112
  Receipt Date: 20130306
  Transmission Date: 20140127
  Serious: Yes (Death, Hospitalization, Other)
  Sender: FDA-Public Use
  Company Number: PHEH2012US021404

PATIENT
  Age: 62 None
  Sex: Male

DRUGS (16)
  1. GILENYA [Suspect]
     Indication: RELAPSING-REMITTING MULTIPLE SCLEROSIS
     Dosage: 0.5 MG, QD
     Route: 048
     Dates: start: 201105
  2. BACLOFEN [Concomitant]
     Dosage: 10 MG, QID
  3. MULTI-VIT [Concomitant]
     Dosage: 1 DF, QD
  4. FOLIC ACID [Concomitant]
     Dosage: 1 MG, QD
  5. LACTULOSE [Concomitant]
     Dosage: 30 MG, BID
  6. LISINOPRIL [Concomitant]
     Dosage: 5 MG, QD
  7. MIRAPEX [Concomitant]
     Dosage: 0.75 MG, FOUR TIMES DAY
  8. TEGRETOL [Concomitant]
     Dosage: 300 MG, TID
     Route: 048
  9. SYNTHROID [Concomitant]
     Dosage: 75 UG, QD
  10. ADVAIR [Concomitant]
     Dosage: 1 DF, BID
  11. ATENOL [Concomitant]
     Dosage: 50 MG, QD
  12. ZINADERM [Concomitant]
     Dosage: 1 DF, Q8H
     Route: 061
  13. COLACE [Concomitant]
     Dosage: 100 MG, BID
  14. ZOFRAN [Concomitant]
     Dosage: 4 MG, Q8H
     Route: 048
  15. TYLENOL [Concomitant]
     Dosage: 325 MG, PRN
  16. AMLODIPINE [Concomitant]
     Dosage: 5 MG, QD

REACTIONS (41)
  - Death [Fatal]
  - Neurogenic bladder [Unknown]
  - Dysphagia [Unknown]
  - Pneumonia aspiration [Unknown]
  - Dyspnoea [Unknown]
  - Oxygen saturation decreased [Unknown]
  - Urosepsis [Unknown]
  - Ischaemic hepatitis [Unknown]
  - Liver function test abnormal [Recovering/Resolving]
  - Aspartate aminotransferase increased [Unknown]
  - Alanine aminotransferase increased [Unknown]
  - Blood alkaline phosphatase increased [Unknown]
  - Septic shock [Unknown]
  - Blood pressure decreased [Unknown]
  - Body temperature increased [Unknown]
  - Renal failure acute [Recovering/Resolving]
  - Urine analysis abnormal [Unknown]
  - Blood urea nitrogen/creatinine ratio increased [Unknown]
  - Blood creatinine increased [Unknown]
  - Blood glucose increased [Unknown]
  - Blood urea increased [Unknown]
  - Blood sodium increased [Unknown]
  - Somnolence [Unknown]
  - Dehydration [Unknown]
  - Blood lactic acid increased [Unknown]
  - Neutrophil count increased [Unknown]
  - Blood cortisol increased [Unknown]
  - Enterococcus test positive [Unknown]
  - Staphylococcus test positive [Unknown]
  - Escherichia test positive [Unknown]
  - Kidney infection [Unknown]
  - Electrocardiogram abnormal [Unknown]
  - Electrocardiogram QRS complex abnormal [Unknown]
  - QRS axis abnormal [Unknown]
  - Sinus tachycardia [Unknown]
  - Swelling [Unknown]
  - Red blood cell count decreased [Unknown]
  - Haematocrit decreased [Unknown]
  - Lipase increased [Unknown]
  - Haemoglobin decreased [Unknown]
  - White blood cell count decreased [Unknown]
